FAERS Safety Report 6658659-4 (Version None)
Quarter: 2010Q1

REPORT INFORMATION
  Report Type: 
  Country: None (occurrence: None)
  Receive Date: 20100330
  Receipt Date: 20100316
  Transmission Date: 20100710
  Serious: Yes (Hospitalization, Other)
  Sender: FDA-Public Use
  Company Number: PHEH2010US03162

PATIENT
  Sex: Female
  Weight: 60.317 kg

DRUGS (15)
  1. EXJADE [Suspect]
     Indication: IRON OVERLOAD
     Dosage: 500 MG, Q12H
     Route: 048
     Dates: start: 20090915, end: 20100228
  2. PROCRIT                            /00909301/ [Concomitant]
     Indication: ANAEMIA
     Dosage: 60,000 UNITS QMONTH
     Dates: start: 20030201
  3. COMPAZINE [Concomitant]
     Dosage: 10 MG Q6HRS PRN
     Route: 048
  4. AMLODIPINE [Concomitant]
     Dosage: 5 MG, QD
     Route: 048
  5. ASPIRIN [Concomitant]
     Dosage: 81 MG, BID
     Route: 048
  6. CELEXA [Concomitant]
     Indication: DEPRESSION
  7. M.V.I. [Concomitant]
     Dosage: UNK
     Route: 048
  8. SYNTHROID [Concomitant]
     Dosage: 75 MCG QD
     Route: 048
  9. MYLANTA                                 /USA/ [Concomitant]
     Dosage: UNK
     Route: 048
  10. CALCIUM W/VITAMIN D NOS [Concomitant]
     Dosage: 500 MG, QD
  11. VITAMIN K TAB [Concomitant]
     Dosage: 5 MG, QD
     Route: 048
     Dates: end: 20100228
  12. OMEPRAZOLE [Concomitant]
     Dosage: 20 MG, QD
     Route: 048
  13. SODIUM BICARBONATE [Concomitant]
     Dosage: 650 MG, QD
     Route: 048
  14. LISINOPRIL AND HYDROCHLOROTHIAZIDE [Concomitant]
     Dosage: 10-12.5 MG QD
     Route: 048
  15. CITALOPRAM HYDROBROMIDE [Concomitant]
     Dosage: 10 MG, QD
     Route: 048

REACTIONS (21)
  - ABDOMINAL PAIN LOWER [None]
  - ALANINE AMINOTRANSFERASE INCREASED [None]
  - ASPARTATE AMINOTRANSFERASE INCREASED [None]
  - BLOOD BILIRUBIN INCREASED [None]
  - BLOOD UREA INCREASED [None]
  - CAROTID ARTERY STENOSIS [None]
  - CEREBRAL ATROPHY [None]
  - CEREBRAL ISCHAEMIA [None]
  - CONFUSIONAL STATE [None]
  - DIARRHOEA [None]
  - LACUNAR INFARCTION [None]
  - LIVER DISORDER [None]
  - LOSS OF CONSCIOUSNESS [None]
  - LUNG DISORDER [None]
  - MENTAL STATUS CHANGES [None]
  - METABOLIC ENCEPHALOPATHY [None]
  - MUSCULAR WEAKNESS [None]
  - NAUSEA [None]
  - RENAL DISORDER [None]
  - SPEECH DISORDER [None]
  - VOMITING [None]
